FAERS Safety Report 19552250 (Version 3)
Quarter: 2021Q3

REPORT INFORMATION
  Report Type: Spontaneous
  Country: JP (occurrence: JP)
  Receive Date: 20210715
  Receipt Date: 20210913
  Transmission Date: 20211014
  Serious: Yes (Other)
  Sender: FDA-Public Use
  Company Number: JP-AMGEN-JPNSP2021107278

PATIENT
  Age: 83 Year
  Sex: Female

DRUGS (3)
  1. LOQOA [Concomitant]
     Active Substance: ESFLURBIPROFEN\HERBALS
     Indication: LUMBAR SPINAL STENOSIS
     Dosage: 2 DOSAGE FORM, QD
  2. VITAMINS NOS [Concomitant]
     Active Substance: VITAMINS
     Indication: LUMBAR SPINAL STENOSIS
     Dosage: 5 MICROGRAM, TID
  3. EVENITY [Suspect]
     Active Substance: ROMOSOZUMAB-AQQG
     Indication: OSTEOPOROSIS
     Dosage: 210 MILLIGRAM
     Route: 058
     Dates: start: 20210512, end: 20210609

REACTIONS (1)
  - Prinzmetal angina [Recovered/Resolved]

NARRATIVE: CASE EVENT DATE: 20210706
